FAERS Safety Report 17660895 (Version 1)
Quarter: 2020Q2

REPORT INFORMATION
  Report Type: Spontaneous
  Country: TR (occurrence: TR)
  Receive Date: 20200413
  Receipt Date: 20200413
  Transmission Date: 20200713
  Serious: Yes (Hospitalization)
  Sender: FDA-Public Use
  Company Number: NVSC2020TR098050

PATIENT
  Age: 83 Year
  Sex: Female

DRUGS (3)
  1. EXELON PATCH [Suspect]
     Active Substance: RIVASTIGMINE
     Indication: DEMENTIA ALZHEIMER^S TYPE
     Dosage: UNK (EXELON PATCH 5 )
     Route: 065
  2. EXELON PATCH [Suspect]
     Active Substance: RIVASTIGMINE
     Dosage: UNK (EXELON PATCH 15)
     Route: 065
  3. EXELON PATCH [Suspect]
     Active Substance: RIVASTIGMINE
     Dosage: UNK (EXELON PATCH 10)
     Route: 065

REACTIONS (2)
  - Tachycardia [Not Recovered/Not Resolved]
  - Blood pressure decreased [Unknown]
